FAERS Safety Report 7297521-3 (Version None)
Quarter: 2011Q1

REPORT INFORMATION
  Report Type: 
  Country: None (occurrence: None)
  Receive Date: 20110216
  Receipt Date: 20110211
  Transmission Date: 20110831
  Serious: Yes (Other)
  Sender: FDA-Public Use
  Company Number: BR-PFIZER INC-2011031132

PATIENT
  Age: 57 Year
  Sex: Female
  Weight: 65 kg

DRUGS (1)
  1. LIPITOR [Suspect]
     Indication: LOW DENSITY LIPOPROTEIN
     Dosage: 20 MG, 1X/DAY
     Route: 048
     Dates: start: 20101019, end: 20101201

REACTIONS (2)
  - HEPATIC ENZYME ABNORMAL [None]
  - HEPATIC STEATOSIS [None]
